FAERS Safety Report 22244716 (Version 1)
Quarter: 2023Q2

REPORT INFORMATION
  Report Type: Spontaneous
  Country: NL (occurrence: NL)
  Receive Date: 20230424
  Receipt Date: 20230424
  Transmission Date: 20230721
  Serious: Yes (Other)
  Sender: FDA-Public Use
  Company Number: None

PATIENT
  Sex: Male
  Weight: 74 kg

DRUGS (3)
  1. LOSARTAN [Suspect]
     Active Substance: LOSARTAN
     Indication: Hypertension
     Dosage: 50 MG, QD (1DD1)
     Route: 065
     Dates: start: 20190101, end: 20220301
  2. OMEPRAZOLE [Suspect]
     Active Substance: OMEPRAZOLE
     Indication: Regurgitation
     Dosage: 20 MG, QD (1DD1)
     Route: 065
     Dates: start: 19800101, end: 20220301
  3. CRESTOR [Suspect]
     Active Substance: ROSUVASTATIN CALCIUM
     Indication: Hypercholesterolaemia
     Dosage: 10 MG, QD (1DD1)
     Route: 065
     Dates: start: 20051001, end: 20220301

REACTIONS (2)
  - Neuropathy peripheral [Recovering/Resolving]
  - Paraesthesia [Unknown]
